FAERS Safety Report 19239011 (Version 2)
Quarter: 2021Q3

REPORT INFORMATION
  Report Type: Spontaneous
  Country: US (occurrence: US)
  Receive Date: 20210510
  Receipt Date: 20210707
  Transmission Date: 20211014
  Serious: Yes (Other)
  Sender: FDA-Public Use
  Company Number: US-TAKEDA-2021TUS028125

PATIENT
  Sex: Female
  Weight: 60 kg

DRUGS (2)
  1. CEPROTIN [Suspect]
     Active Substance: PROTEIN C
     Indication: PROTEIN C DEFICIENCY
     Dosage: UNK
     Route: 058
  2. CEPROTIN [Suspect]
     Active Substance: PROTEIN C
     Dosage: 5500 INTERNATIONAL UNIT, Q48HR
     Route: 042

REACTIONS (2)
  - Vascular device infection [Unknown]
  - Incorrect route of product administration [Unknown]
